FAERS Safety Report 24795511 (Version 1)
Quarter: 2024Q4

REPORT INFORMATION
  Report Type: Spontaneous
  Country: JP (occurrence: JP)
  Receive Date: 20241231
  Receipt Date: 20241231
  Transmission Date: 20250115
  Serious: Yes (Other)
  Sender: AMGEN
  Company Number: JP-KYOWAKIRIN-2024KK029000

PATIENT
  Age: 9 Decade
  Sex: Female

DRUGS (3)
  1. DARBEPOETIN ALFA [Suspect]
     Active Substance: DARBEPOETIN ALFA
     Indication: Nephrogenic anaemia
     Dosage: 80 UG,80 MICROGRAMS (60 MICROGRAMS PLUS 20 MICROGRAMS) OF NSP-AG WAS BEING ADMINISTERED
     Route: 040
     Dates: end: 202407
  2. DAPRODUSTAT [Suspect]
     Active Substance: DAPRODUSTAT
     Indication: Nephrogenic anaemia
     Dosage: UNK MG
     Route: 048
     Dates: start: 202407
  3. DAPRODUSTAT [Suspect]
     Active Substance: DAPRODUSTAT
     Dosage: 10 MG
     Route: 048
     Dates: start: 2024

REACTIONS (2)
  - Plasma cell myeloma [Not Recovered/Not Resolved]
  - Fracture [Recovered/Resolved]

NARRATIVE: CASE EVENT DATE: 20241201
